FAERS Safety Report 9712145 (Version 1)
Quarter: 2013Q4

REPORT INFORMATION
  Report Type: Spontaneous
  Country: US (occurrence: None)
  Receive Date: 20131125
  Receipt Date: 20131125
  Transmission Date: 20140711
  Serious: Yes (Disabling)
  Sender: FDA-Public Use
  Company Number: None

PATIENT
  Age: 50 Year
  Sex: Female
  Weight: 68.04 kg

DRUGS (1)
  1. LEVOTHYROXIN [Suspect]
     Indication: HYPOTHYROIDISM
     Route: 048
     Dates: start: 20130901

REACTIONS (13)
  - Product substitution issue [None]
  - Product quality issue [None]
  - Cognitive disorder [None]
  - Dyspepsia [None]
  - Weight increased [None]
  - Dry skin [None]
  - Lethargy [None]
  - Impaired work ability [None]
  - Disturbance in attention [None]
  - Thinking abnormal [None]
  - Blood thyroid stimulating hormone increased [None]
  - Drug ineffective [None]
  - Economic problem [None]
